FAERS Safety Report 13829219 (Version 2)
Quarter: 2017Q3

REPORT INFORMATION
  Report Type: Spontaneous
  Country: IT (occurrence: IT)
  Receive Date: 20170803
  Receipt Date: 20170907
  Transmission Date: 20171127
  Serious: Yes (Life-Threatening, Other)
  Sender: FDA-Public Use
  Company Number: IT-KRKA, D.D., NOVO MESTO-2024112

PATIENT
  Age: 48 Year
  Sex: Male

DRUGS (5)
  1. LABETALOL [Suspect]
     Active Substance: LABETALOL\LABETALOL HYDROCHLORIDE
  2. ENALAPRIL WORLD [Suspect]
     Active Substance: ENALAPRIL
     Indication: HYPERTENSION
  3. AMLODIPINE [Suspect]
     Active Substance: AMLODIPINE BESYLATE
  4. FENOLDOPAM [Suspect]
     Active Substance: FENOLDOPAM
  5. GLYCERYL TRINITRATE [Suspect]
     Active Substance: NITROGLYCERIN

REACTIONS (1)
  - Drug ineffective [Unknown]
